FAERS Safety Report 21284690 (Version 1)
Quarter: 2022Q3

REPORT INFORMATION
  Report Type: Spontaneous
  Country: DK (occurrence: DK)
  Receive Date: 20220902
  Receipt Date: 20220902
  Transmission Date: 20221027
  Serious: Yes (Hospitalization)
  Sender: FDA-Public Use
  Company Number: None

PATIENT
  Age: 54 Year
  Sex: Male
  Weight: 129 kg

DRUGS (1)
  1. OZEMPIC [Suspect]
     Active Substance: SEMAGLUTIDE
     Indication: Type 2 diabetes mellitus
     Dosage: 1 MG, QW(STRENGHT: 0.25)
     Route: 058
     Dates: start: 20220620

REACTIONS (2)
  - Diverticulitis [Recovered/Resolved with Sequelae]
  - Abdominal pain lower [Unknown]

NARRATIVE: CASE EVENT DATE: 20220816
